FAERS Safety Report 10776919 (Version 2)
Quarter: 2015Q1

REPORT INFORMATION
  Report Type: Spontaneous
  Country: JP (occurrence: JP)
  Receive Date: 20150209
  Receipt Date: 20150220
  Transmission Date: 20150721
  Serious: Yes (Hospitalization)
  Sender: FDA-Public Use
  Company Number: PHJP2015JP001334

PATIENT
  Age: 55 Year
  Sex: Female

DRUGS (6)
  1. FLUVOXAMINE [Concomitant]
     Active Substance: FLUVOXAMINE
     Indication: SCHIZOPHRENIA
     Dosage: 50 MG, QD
     Route: 048
  2. LEVOMEPROMAZINE [Concomitant]
     Active Substance: LEVOMEPROMAZINE
     Indication: SCHIZOPHRENIA
     Dosage: 150 MG, QD
     Route: 048
  3. CLONAZEPAM. [Concomitant]
     Active Substance: CLONAZEPAM
     Indication: SCHIZOPHRENIA
     Dosage: 6 MG, QD
     Route: 048
  4. AMOXAPINE. [Concomitant]
     Active Substance: AMOXAPINE
     Indication: SCHIZOPHRENIA
     Dosage: 50 MG, QD
     Route: 048
  5. CARBAMAZEPINE. [Suspect]
     Active Substance: CARBAMAZEPINE
     Indication: SCHIZOPHRENIA
     Dosage: 600 MG, UNK
     Route: 048
  6. FLUNITRAZEPAM [Concomitant]
     Active Substance: FLUNITRAZEPAM
     Indication: PRODUCT USED FOR UNKNOWN INDICATION
     Dosage: 4 MG, QD
     Route: 065

REACTIONS (8)
  - Respiratory distress [Recovering/Resolving]
  - Fall [Unknown]
  - Anticonvulsant drug level decreased [Unknown]
  - Hypoxia [Unknown]
  - Upper airway obstruction [Recovering/Resolving]
  - Pulmonary oedema [Recovering/Resolving]
  - Altered state of consciousness [Unknown]
  - Respiratory acidosis [Unknown]
